FAERS Safety Report 25357049 (Version 1)
Quarter: 2025Q2

REPORT INFORMATION
  Report Type: Spontaneous
  Country: US (occurrence: US)
  Receive Date: 20250526
  Receipt Date: 20250526
  Transmission Date: 20250716
  Serious: No
  Sender: KVK-TECH
  Company Number: US-KVK-TECH, INC-20240600062

PATIENT
  Sex: Male

DRUGS (1)
  1. METHYLPHENIDATE HYDROCHLORIDE [Suspect]
     Active Substance: METHYLPHENIDATE HYDROCHLORIDE
     Route: 065
     Dates: start: 20240226, end: 20240301

REACTIONS (9)
  - Panic attack [Unknown]
  - Anxiety [Unknown]
  - Heart rate increased [Unknown]
  - Somnolence [Unknown]
  - Feeling abnormal [Unknown]
  - Blood pressure increased [Unknown]
  - Headache [Unknown]
  - Product substitution issue [Unknown]
  - Therapeutic response decreased [Unknown]

NARRATIVE: CASE EVENT DATE: 20240101
